FAERS Safety Report 10267886 (Version 1)
Quarter: 2014Q2

REPORT INFORMATION
  Report Type: Spontaneous
  Country: GB (occurrence: GB)
  Receive Date: 20140630
  Receipt Date: 20140630
  Transmission Date: 20141212
  Serious: Yes (Congenital Anomaly)
  Sender: FDA-Public Use
  Company Number: GB-TEVA-489860ISR

PATIENT
  Age: 31 Year
  Sex: Female
  Weight: 67.9 kg

DRUGS (3)
  1. CIPROFLOXACIN [Suspect]
     Indication: URINARY TRACT INFECTION
     Route: 048
     Dates: start: 20131109, end: 20131111
  2. TRIMETHOPRIM [Concomitant]
     Indication: URINARY TRACT INFECTION
  3. FOLIC ACID [Concomitant]

REACTIONS (2)
  - Limb reduction defect [Not Recovered/Not Resolved]
  - Pregnancy [None]
